FAERS Safety Report 8069450-9 (Version None)
Quarter: 2012Q1

REPORT INFORMATION
  Report Type: 
  Country: None (occurrence: None)
  Receive Date: 20120119
  Receipt Date: 20120106
  Transmission Date: 20120608
  Serious: Yes (Other)
  Sender: FDA-Public Use
  Company Number: JPI-P-019173

PATIENT
  Age: 66 Year
  Sex: Female

DRUGS (6)
  1. LEVOTHYROXINE SODIUM (75 MICROGRAM) [Concomitant]
  2. ETODOLAC (500 MILLIGRAM) [Concomitant]
  3. XYREM [Suspect]
     Indication: INSOMNIA
     Dosage: ORAL 6 GM (6 GM, 1 IN 1 D), ORAL
     Route: 048
     Dates: start: 20050609
  4. XYREM [Suspect]
     Indication: UPPER AIRWAY RESISTANCE SYNDROME
     Dosage: ORAL 6 GM (6 GM, 1 IN 1 D), ORAL
     Route: 048
     Dates: start: 20050609
  5. ZOLPIDEM TARTRATE (12.5 MILLIGRAM) [Concomitant]
  6. LACOSAMIDE (100 MILLIGRAM) [Concomitant]

REACTIONS (7)
  - NAUSEA [None]
  - INTENTIONAL DRUG MISUSE [None]
  - PAIN [None]
  - FATIGUE [None]
  - CHOLELITHIASIS [None]
  - INSOMNIA [None]
  - SOMNOLENCE [None]
